FAERS Safety Report 15525756 (Version 3)
Quarter: 2020Q3

REPORT INFORMATION
  Report Type: Report from Study
  Country: US (occurrence: US)
  Receive Date: 20181019
  Receipt Date: 20200929
  Transmission Date: 20201102
  Serious: No
  Sender: FDA-Public Use
  Company Number: PHEH2018US044012

PATIENT
  Age: 74 Year
  Sex: Female

DRUGS (6)
  1. COSENTYX [Suspect]
     Active Substance: SECUKINUMAB
     Indication: PRODUCT USED FOR UNKNOWN INDICATION
     Dosage: 300 MG, QMO
     Route: 058
     Dates: start: 201809
  2. COSENTYX [Suspect]
     Active Substance: SECUKINUMAB
     Route: 058
  3. COSENTYX [Suspect]
     Active Substance: SECUKINUMAB
     Route: 058
  4. COSENTYX [Suspect]
     Active Substance: SECUKINUMAB
     Dosage: 300 MG, QW
     Route: 058
  5. COSENTYX [Suspect]
     Active Substance: SECUKINUMAB
     Dosage: 300 MG/KG, QW
     Route: 058
  6. COSENTYX [Suspect]
     Active Substance: SECUKINUMAB
     Dosage: 300 MG/KG, QW
     Route: 058

REACTIONS (4)
  - Infection [Unknown]
  - Psoriasis [Unknown]
  - Stress [Unknown]
  - Lower limb fracture [Unknown]

NARRATIVE: CASE EVENT DATE: 201809
